FAERS Safety Report 22114237 (Version 1)
Quarter: 2023Q1

REPORT INFORMATION
  Report Type: Spontaneous
  Country: US (occurrence: US)
  Receive Date: 20230320
  Receipt Date: 20230320
  Transmission Date: 20230417
  Serious: No
  Sender: FDA-Public Use
  Company Number: US-BIOGEN-2021BI01055113

PATIENT
  Sex: Female

DRUGS (2)
  1. TYSABRI [Suspect]
     Active Substance: NATALIZUMAB
     Indication: Multiple sclerosis
     Route: 050
     Dates: start: 20190529
  2. TYSABRI [Suspect]
     Active Substance: NATALIZUMAB
     Route: 050
     Dates: start: 20151023, end: 20171013

REACTIONS (4)
  - Cognitive disorder [Not Recovered/Not Resolved]
  - Screaming [Not Recovered/Not Resolved]
  - SARS-CoV-2 test positive [Unknown]
  - Gait disturbance [Unknown]
